FAERS Safety Report 4693838-7 (Version None)
Quarter: 2005Q2

REPORT INFORMATION
  Report Type: 
  Country: None (occurrence: None)
  Receive Date: 20050616
  Receipt Date: 20050608
  Transmission Date: 20051028
  Serious: Yes (Hospitalization)
  Sender: FDA-Public Use
  Company Number: 2005069118

PATIENT
  Age: 34 Year
  Sex: Male

DRUGS (9)
  1. PRODILANTIN           (FOSPHENYTOIN) [Suspect]
     Indication: ILL-DEFINED DISORDER
     Dosage: 1 GRAM (1 IN 1 D), INTRAVENOUS
     Route: 042
     Dates: start: 20050404, end: 20050405
  2. MIDAZOLAM HCL [Suspect]
     Indication: ILL-DEFINED DISORDER
     Dosage: INTRAVENOUS
     Route: 042
  3. OMEPRAZOLE [Suspect]
     Indication: ILL-DEFINED DISORDER
     Dosage: ORAL
     Route: 048
     Dates: end: 20050406
  4. ACECLOFENAC   (ACECLOFENAC) [Suspect]
     Indication: ANKYLOSING SPONDYLITIS
     Dosage: ORAL
     Route: 048
     Dates: end: 20050404
  5. THIOPENTAL SODIUM [Suspect]
     Indication: INTUBATION
  6. NORCURON [Suspect]
     Indication: INTUBATION
  7. TEGRETOL [Concomitant]
  8. KEPPRA [Concomitant]
  9. CORTANCYL (PREDNISONE) [Concomitant]

REACTIONS (8)
  - ANTICONVULSANT DRUG LEVEL BELOW THERAPEUTIC [None]
  - BODY TEMPERATURE INCREASED [None]
  - CONDITION AGGRAVATED [None]
  - CONVULSION [None]
  - CYTOLYTIC HEPATITIS [None]
  - RASH GENERALISED [None]
  - RASH MORBILLIFORM [None]
  - THROMBOCYTOPENIA [None]
